FAERS Safety Report 6897585-2 (Version None)
Quarter: 2010Q3

REPORT INFORMATION
  Report Type: 
  Country: None (occurrence: None)
  Receive Date: 20100729
  Receipt Date: 20100714
  Transmission Date: 20110219
  Serious: Yes (Hospitalization, Other)
  Sender: FDA-Public Use
  Company Number: VAL_00441_2010

PATIENT
  Age: 80 Year
  Sex: Female
  Weight: 57 kg

DRUGS (2)
  1. ROCALTROL [Suspect]
     Indication: OSTEOPOROSIS
     Dosage: 0.25 UG QD ORAL
     Route: 048
     Dates: start: 20070423
  2. D-CAL-CALCIUM SUPPLELMENT WITH VITAMIN D [Concomitant]

REACTIONS (4)
  - DRUG INEFFECTIVE [None]
  - FRACTURED COCCYX [None]
  - LUMBAR VERTEBRAL FRACTURE [None]
  - PATHOLOGICAL FRACTURE [None]
